FAERS Safety Report 7540026-2 (Version None)
Quarter: 2011Q2

REPORT INFORMATION
  Report Type: 
  Country: None (occurrence: None)
  Receive Date: 20110610
  Receipt Date: 20110603
  Transmission Date: 20111010
  Serious: Yes (Other)
  Sender: FDA-Public Use
  Company Number: US-B.I. PHARMACEUTICALS,INC./RIDGEFIELD-2011-BP-13986BP

PATIENT
  Age: 83 Year
  Sex: Male

DRUGS (11)
  1. FISH OIL OMEGA 3 [Concomitant]
     Dosage: 1000 MG
  2. LIPITOR [Concomitant]
     Indication: BLOOD CHOLESTEROL INCREASED
     Dosage: 80 MG
     Route: 048
  3. TAMSULOSIN HCL [Concomitant]
     Dosage: 0.4 MG
  4. PRADAXA [Suspect]
     Indication: ATRIAL FIBRILLATION
     Route: 048
     Dates: start: 20110515, end: 20110517
  5. METFORMIN HCL [Concomitant]
     Dosage: 2000 MG
  6. FOLIC ACID [Concomitant]
     Dosage: 1 MG
  7. COUMADIN [Concomitant]
     Indication: CEREBROVASCULAR ACCIDENT
     Dosage: 5 MG
     Route: 048
     Dates: start: 20110517
  8. AMIODARONE HCL [Concomitant]
     Indication: ATRIAL FIBRILLATION
     Route: 048
  9. PRADAXA [Suspect]
     Indication: CEREBROVASCULAR ACCIDENT PROPHYLAXIS
  10. LIPITOR [Concomitant]
     Indication: HYPERTENSION
  11. IRON FERROUS [Concomitant]
     Dosage: 325 MG

REACTIONS (3)
  - CHEST PAIN [None]
  - HAEMATOCHEZIA [None]
  - PAIN IN EXTREMITY [None]
